FAERS Safety Report 19011999 (Version 1)
Quarter: 2021Q1

REPORT INFORMATION
  Report Type: Report from Study
  Country: US (occurrence: US)
  Receive Date: 20210316
  Receipt Date: 20210316
  Transmission Date: 20210420
  Serious: Yes (Other)
  Sender: FDA-Public Use
  Company Number: US-ASTELLAS-2021US000499

PATIENT
  Age: 72 Year
  Sex: Male

DRUGS (1)
  1. ASP2215 [Suspect]
     Active Substance: GILTERITINIB
     Indication: ACUTE MYELOID LEUKAEMIA
     Route: 048
     Dates: start: 20201221, end: 20210215

REACTIONS (6)
  - Platelet count decreased [Unknown]
  - Visual impairment [Unknown]
  - Oral pain [Unknown]
  - Peripheral swelling [Unknown]
  - Speech disorder [Unknown]
  - Myelosuppression [Unknown]

NARRATIVE: CASE EVENT DATE: 20210105
